FAERS Safety Report 13525406 (Version 1)
Quarter: 2017Q2

REPORT INFORMATION
  Report Type: Spontaneous
  Country: US (occurrence: US)
  Receive Date: 20170508
  Receipt Date: 20170508
  Transmission Date: 20170830
  Serious: No
  Sender: FDA-Public Use
  Company Number: US-ROCHE-1126529

PATIENT
  Sex: Female

DRUGS (2)
  1. DOXIL [Concomitant]
     Active Substance: DOXORUBICIN HYDROCHLORIDE
  2. AVASTIN [Suspect]
     Active Substance: BEVACIZUMAB
     Indication: UTERINE CANCER
     Route: 065
     Dates: start: 20060824

REACTIONS (3)
  - Oropharyngeal pain [Unknown]
  - Mouth ulceration [Unknown]
  - Pain in extremity [Unknown]
